FAERS Safety Report 4387720-2 (Version None)
Quarter: 2004Q2

REPORT INFORMATION
  Report Type: 
  Country: None (occurrence: None)
  Receive Date: 20040630
  Receipt Date: 20031016
  Transmission Date: 20050107
  Serious: Yes (Hospitalization, Disabling, Other)
  Sender: FDA-Public Use
  Company Number: US-MERCK-0310USA01950

PATIENT
  Age: 57 Year
  Sex: Female
  Weight: 66 kg

DRUGS (6)
  1. LIPITOR [Concomitant]
     Route: 065
     Dates: start: 20000401, end: 20000601
  2. LIPITOR [Concomitant]
     Route: 065
     Dates: start: 20021104
  3. VIOXX [Suspect]
     Indication: ARTHRITIS
     Route: 048
     Dates: start: 19990101, end: 20000601
  4. VIOXX [Suspect]
     Route: 048
     Dates: start: 20000601
  5. VIOXX [Suspect]
     Indication: GOUT
     Route: 048
     Dates: start: 19990101, end: 20000601
  6. VIOXX [Suspect]
     Route: 048
     Dates: start: 20000601

REACTIONS (37)
  - ALANINE AMINOTRANSFERASE INCREASED [None]
  - ASPARTATE AMINOTRANSFERASE INCREASED [None]
  - BLOOD CHOLESTEROL INCREASED [None]
  - BLOOD PRESSURE INADEQUATELY CONTROLLED [None]
  - BLOOD TRIGLYCERIDES INCREASED [None]
  - BLOOD URIC ACID INCREASED [None]
  - CAROTID ARTERY OCCLUSION [None]
  - CAROTID ARTERY STENOSIS [None]
  - CAROTID BRUIT [None]
  - CEREBRAL INFARCTION [None]
  - CEREBROVASCULAR ACCIDENT [None]
  - COMMINUTED FRACTURE [None]
  - CONTUSION [None]
  - DEPRESSION [None]
  - DIABETES MELLITUS NON-INSULIN-DEPENDENT [None]
  - DIASTOLIC DYSFUNCTION [None]
  - DYSPHORIA [None]
  - DYSTHYMIC DISORDER [None]
  - EYE INJURY [None]
  - FALL [None]
  - FATIGUE [None]
  - HIGH DENSITY LIPOPROTEIN INCREASED [None]
  - HYPERLIPIDAEMIA [None]
  - JOINT INJURY [None]
  - JOINT SPRAIN [None]
  - LOSS OF CONSCIOUSNESS [None]
  - PAIN [None]
  - PAIN IN EXTREMITY [None]
  - PALLOR [None]
  - RADIUS FRACTURE [None]
  - RIB FRACTURE [None]
  - SOMNOLENCE [None]
  - SYNCOPE [None]
  - SYNCOPE VASOVAGAL [None]
  - TRICUSPID VALVE INCOMPETENCE [None]
  - UPPER RESPIRATORY TRACT INFECTION [None]
  - WEIGHT INCREASED [None]
